FAERS Safety Report 8480125-4 (Version None)
Quarter: 2012Q2

REPORT INFORMATION
  Report Type: 
  Country: None (occurrence: None)
  Receive Date: 20120629
  Receipt Date: 20120622
  Transmission Date: 20120825
  Serious: Yes (Death, Hospitalization)
  Sender: FDA-Public Use
  Company Number: US-ROCHE-772815

PATIENT
  Sex: Male
  Weight: 124.5 kg

DRUGS (13)
  1. METOPROLOL SUCCINATE [Concomitant]
  2. PRILOSEC [Concomitant]
  3. FUROSEMIDE [Concomitant]
  4. NORCO [Concomitant]
     Dosage: TDD: 325/7.5 MG
  5. TYLENOL PM [Concomitant]
     Dosage: TDD: 650/50 MG
     Dates: start: 20110401
  6. ASPIRIN [Concomitant]
  7. FOLIC ACID [Concomitant]
  8. LISINOPRIL [Concomitant]
  9. SIMVASTATIN [Concomitant]
  10. ACTEMRA [Suspect]
     Indication: RHEUMATOID ARTHRITIS
     Dosage: LAST DOSE PRIOR TO SAE: 16 FEB 2011
     Route: 042
  11. METHOTREXATE [Suspect]
     Indication: RHEUMATOID ARTHRITIS
     Route: 048
     Dates: start: 20100514, end: 20120227
  12. FISH OIL [Concomitant]
     Dates: start: 20120202
  13. METOPROLOL SUCCINATE [Concomitant]

REACTIONS (2)
  - ATRIAL FIBRILLATION [None]
  - CARDIAC FAILURE CONGESTIVE [None]
